FAERS Safety Report 4517851-5 (Version None)
Quarter: 2004Q4

REPORT INFORMATION
  Report Type: 
  Country: None (occurrence: None)
  Receive Date: 20041203
  Receipt Date: 20041129
  Transmission Date: 20050328
  Serious: Yes (Other)
  Sender: FDA-Public Use
  Company Number: US-JNJFOC-20041106741

PATIENT
  Age: 45 Year
  Sex: Male
  Weight: 111.59 kg

DRUGS (3)
  1. DURAGESIC [Suspect]
     Dosage: TWO 100 UG/HR PATCHES, AND ONE 50 UG/HR PATCH
     Route: 062
     Dates: start: 20000101
  2. DURAGESIC [Suspect]
     Route: 062
     Dates: start: 20000101
  3. METHADONE [Concomitant]
     Indication: PAIN
     Route: 049

REACTIONS (5)
  - ABDOMINAL PAIN UPPER [None]
  - NECK PAIN [None]
  - TOOTH FRACTURE [None]
  - TOOTH INJURY [None]
  - WEIGHT INCREASED [None]
